FAERS Safety Report 19179064 (Version 2)
Quarter: 2021Q2

REPORT INFORMATION
  Report Type: Spontaneous
  Country: US (occurrence: US)
  Receive Date: 20210426
  Receipt Date: 20210426
  Transmission Date: 20210717
  Serious: Yes (Hospitalization)
  Sender: FDA-Public Use
  Company Number: US-CADILA HEALTHCARE LIMITED-US-ZYDUS-064855

PATIENT

DRUGS (9)
  1. CLONAZEPAM. [Suspect]
     Active Substance: CLONAZEPAM
     Indication: BIPOLAR DISORDER
     Dosage: 0.5 MILLIGRAM, QD
     Route: 065
  2. ERENUMAB [Concomitant]
     Active Substance: ERENUMAB
     Indication: MIGRAINE
     Dosage: 70 MILLIGRAM
  3. AMITRIPTYLINE [Suspect]
     Active Substance: AMITRIPTYLINE
     Indication: BIPOLAR DISORDER
     Dosage: 175 MILLIGRAM, QD
     Route: 065
  4. TOPIRAMATE. [Suspect]
     Active Substance: TOPIRAMATE
     Indication: SEIZURE
     Dosage: 100 MILLIGRAM, QD
     Route: 065
  5. SITAGLIPTIN [Concomitant]
     Active Substance: SITAGLIPTIN
     Indication: DIABETES MELLITUS
     Dosage: 25 MILLIGRAM, QD
  6. LURASIDONE [Suspect]
     Active Substance: LURASIDONE
     Indication: BIPOLAR DISORDER
     Dosage: 80 MILLIGRAM, QD
     Route: 065
  7. TRAZODONE [Suspect]
     Active Substance: TRAZODONE HYDROCHLORIDE
     Indication: BIPOLAR DISORDER
     Dosage: 100 MILLIGRAM, QD
     Route: 065
  8. CYCLOBENZAPRINE. [Suspect]
     Active Substance: CYCLOBENZAPRINE
     Indication: PRODUCT USED FOR UNKNOWN INDICATION
     Dosage: 10 MILLIGRAM, QD
     Route: 065
  9. BENZATROPINE [Suspect]
     Active Substance: BENZTROPINE
     Indication: SEIZURE
     Dosage: 1 MILLIGRAM, TID
     Route: 065

REACTIONS (2)
  - Hyperthermia [Unknown]
  - Drug interaction [Unknown]
